FAERS Safety Report 7307443-7 (Version None)
Quarter: 2011Q1

REPORT INFORMATION
  Report Type: 
  Country: None (occurrence: None)
  Receive Date: 20110211
  Receipt Date: 20110127
  Transmission Date: 20110831
  Serious: Yes (Hospitalization)
  Sender: FDA-Public Use
  Company Number: AXC-2011-000043

PATIENT
  Age: 13 Year
  Sex: Female

DRUGS (4)
  1. OMEPRAZOLE [Suspect]
     Indication: CROHN'S DISEASE
  2. MESALAMINE [Suspect]
     Indication: CROHN'S DISEASE
  3. MERCAPTOPURINE [Suspect]
     Indication: CROHN'S DISEASE
     Dosage: 1 MG/KG, QD
  4. BUDESONIDE [Suspect]
     Indication: CROHN'S DISEASE

REACTIONS (10)
  - FULL BLOOD COUNT ABNORMAL [None]
  - DRUG INEFFECTIVE FOR UNAPPROVED INDICATION [None]
  - UPPER RESPIRATORY TRACT INFECTION [None]
  - ALOPECIA [None]
  - PYREXIA [None]
  - DIZZINESS [None]
  - ESCHERICHIA SEPSIS [None]
  - PANCYTOPENIA [None]
  - VIRAL INFECTION [None]
  - FATIGUE [None]
